FAERS Safety Report 7115239-4 (Version None)
Quarter: 2010Q4

REPORT INFORMATION
  Report Type: 
  Country: None (occurrence: None)
  Receive Date: 20101122
  Receipt Date: 20091113
  Transmission Date: 20110411
  Serious: No
  Sender: FDA-Public Use
  Company Number: A0835462A

PATIENT
  Age: 14 Year
  Sex: Female

DRUGS (1)
  1. EVOCLIN [Suspect]
     Route: 061

REACTIONS (2)
  - HYPERSENSITIVITY [None]
  - RASH [None]
